FAERS Safety Report 8775208 (Version 2)
Quarter: 2012Q4

REPORT INFORMATION
  Report Type: 
  Country: US (occurrence: US)
  Receive Date: 20120907
  Receipt Date: 20121019
  Transmission Date: 20130627
  Serious: Yes (Death)
  Sender: FDA-Public Use
  Company Number: US-ASTELLAS-2012US007550

PATIENT
  Age: 76 Year
  Sex: Male

DRUGS (4)
  1. VESICARE [Suspect]
     Indication: POLLAKIURIA
     Dosage: 10 mg, UID/QD
     Route: 048
     Dates: start: 20120320, end: 20120618
  2. VESICARE [Suspect]
     Indication: NOCTURIA
  3. VESICARE [Suspect]
     Indication: MICTURITION URGENCY
  4. VESICARE [Suspect]
     Indication: URGE INCONTINENCE

REACTIONS (2)
  - Off label use [Unknown]
  - Death [Fatal]
